FAERS Safety Report 14679531 (Version 1)
Quarter: 2018Q1

REPORT INFORMATION
  Report Type: Spontaneous
  Country: ES (occurrence: ES)
  Receive Date: 20180326
  Receipt Date: 20180326
  Transmission Date: 20180509
  Serious: Yes (Other)
  Sender: FDA-Public Use
  Company Number: ES-TEVA-2018-ES-870699

PATIENT
  Age: 29 Year
  Sex: Male

DRUGS (3)
  1. POLARAMINE 5 MG/ML INJECTABLE SOLUTION , 2 [Concomitant]
     Indication: PRURITUS
     Dosage: ANTIHISTAMINE
     Dates: start: 20180117, end: 20180127
  2. ATARAX 25 MG FILM-LABELED COMPRESSES, 25 TABLETS [Concomitant]
     Indication: PRURITUS
     Dosage: ANTIHISTAMINE
     Dates: start: 20180112
  3. ZOLPIDEM [Suspect]
     Active Substance: ZOLPIDEM\ZOLPIDEM TARTRATE
     Indication: ANALGESIC THERAPY
     Dosage: 1 PILL AT NIGHT
     Route: 048
     Dates: start: 20180127, end: 20180128

REACTIONS (8)
  - Tachycardia [Recovered/Resolved]
  - Abnormal behaviour [Recovered/Resolved]
  - Restlessness [Recovered/Resolved]
  - Agitation [Recovered/Resolved]
  - Hallucination [Recovered/Resolved]
  - Nightmare [Recovered/Resolved]
  - Depressed level of consciousness [Recovered/Resolved]
  - Anterograde amnesia [Recovered/Resolved]

NARRATIVE: CASE EVENT DATE: 20180127
